FAERS Safety Report 25280818 (Version 7)
Quarter: 2025Q2

REPORT INFORMATION
  Report Type: Spontaneous
  Country: US (occurrence: US)
  Receive Date: 20250508
  Receipt Date: 20250604
  Transmission Date: 20250717
  Serious: Yes (Hospitalization, Other)
  Sender: BIOVITRUM
  Company Number: US-BIOVITRUM-2025-US-005699

PATIENT
  Age: 46 Year
  Sex: Female

DRUGS (2)
  1. VONJO [Suspect]
     Active Substance: PACRITINIB
     Indication: Myelofibrosis
     Route: 048
     Dates: start: 20250214
  2. VONJO [Suspect]
     Active Substance: PACRITINIB
     Route: 048

REACTIONS (7)
  - Off label use [Recovered/Resolved]
  - Pain [Unknown]
  - Poor quality sleep [Unknown]
  - Drug intolerance [Unknown]
  - Seizure [Unknown]
  - Myelofibrosis [Unknown]
  - Condition aggravated [Unknown]

NARRATIVE: CASE EVENT DATE: 20250214
